FAERS Safety Report 25662282 (Version 3)
Quarter: 2025Q3

REPORT INFORMATION
  Report Type: Spontaneous
  Country: US (occurrence: US)
  Receive Date: 20250810
  Receipt Date: 20250919
  Transmission Date: 20251020
  Serious: No
  Sender: DR REDDYS
  Company Number: US-DRL-USA-USA/2025/07/010816

PATIENT
  Age: 14 Year
  Sex: Female
  Weight: 81 kg

DRUGS (2)
  1. ZENATANE [Suspect]
     Active Substance: ISOTRETINOIN
     Indication: Acne
     Dosage: ONE WITH DINNER
     Route: 065
     Dates: start: 20250505
  2. ZENATANE [Suspect]
     Active Substance: ISOTRETINOIN
     Dosage: ONE WITH BREAKFAST
     Route: 065
     Dates: start: 20250505

REACTIONS (3)
  - Product dispensing error [Unknown]
  - Product dose omission issue [Unknown]
  - Insurance issue [Unknown]

NARRATIVE: CASE EVENT DATE: 20250707
